FAERS Safety Report 5686031-2 (Version None)
Quarter: 2008Q1

REPORT INFORMATION
  Report Type: 
  Country: None (occurrence: None)
  Receive Date: 20080328
  Receipt Date: 20070809
  Transmission Date: 20080703
  Serious: No
  Sender: FDA-Public Use
  Company Number: US-BAYER-US-2007-026055

PATIENT
  Sex: Male

DRUGS (1)
  1. MIRENA [Suspect]

REACTIONS (1)
  - GENITAL PAIN [None]
